FAERS Safety Report 25620883 (Version 1)
Quarter: 2025Q3

REPORT INFORMATION
  Report Type: Report from Study
  Country: MY (occurrence: MY)
  Receive Date: 20250730
  Receipt Date: 20250730
  Transmission Date: 20251020
  Serious: Yes (Hospitalization, Other)
  Sender: EMD SERONO INC
  Company Number: MY-Merck Healthcare KGaA-2024058081

PATIENT
  Age: 14 Year
  Sex: Male

DRUGS (1)
  1. SAIZEN [Suspect]
     Active Substance: SOMATROPIN
     Indication: Growth hormone deficiency
     Dosage: 0.8 (UNIT UNSPECIFIED)?6 MG (5.83MG/ML) SOLUTION FOR INJECTION

REACTIONS (2)
  - Injection site discharge [Unknown]
  - Therapeutic response decreased [Unknown]
